FAERS Safety Report 8076704-9 (Version None)
Quarter: 2012Q1

REPORT INFORMATION
  Report Type: 
  Country: None (occurrence: None)
  Receive Date: 20120127
  Receipt Date: 20120120
  Transmission Date: 20120608
  Serious: Yes (Life-Threatening)
  Sender: FDA-Public Use
  Company Number: US-BAYER-2011-096149

PATIENT
  Age: 43 Year
  Sex: Female
  Weight: 83.9 kg

DRUGS (4)
  1. YAZ [Suspect]
     Route: 048
  2. DROSPIRENONE AND ETHINYL ESTRADIOL [Suspect]
     Route: 048
  3. YASMIN [Suspect]
     Route: 048
  4. ZITHROMAX [Concomitant]
     Dosage: UNK
     Route: 048
     Dates: start: 20090202

REACTIONS (9)
  - THROMBOSIS [None]
  - PAIN [None]
  - INJURY [None]
  - ANXIETY [None]
  - ANHEDONIA [None]
  - DEEP VEIN THROMBOSIS [None]
  - EMOTIONAL DISTRESS [None]
  - GENERAL PHYSICAL HEALTH DETERIORATION [None]
  - PULMONARY EMBOLISM [None]
